FAERS Safety Report 5061885-1 (Version None)
Quarter: 2006Q3

REPORT INFORMATION
  Report Type: 
  Country: None (occurrence: None)
  Receive Date: 20060726
  Receipt Date: 20060329
  Transmission Date: 20061208
  Serious: Yes (Hospitalization, Other)
  Sender: FDA-Public Use
  Company Number: PHEH2006US04239

PATIENT
  Age: 65 Year
  Sex: Female
  Weight: 63.492 kg

DRUGS (3)
  1. EXJADE [Suspect]
     Indication: BLOOD IRON INCREASED
     Dosage: 250MG AM+1000MGPM
     Route: 048
     Dates: start: 20060325, end: 20060327
  2. EXJADE [Suspect]
     Dosage: 250MG AM+1000MGPM
     Route: 048
     Dates: start: 20060228, end: 20060321
  3. INFLUENZA VACCINE [Concomitant]

REACTIONS (25)
  - ALANINE AMINOTRANSFERASE INCREASED [None]
  - ASPARTATE AMINOTRANSFERASE INCREASED [None]
  - BLOOD ALKALINE PHOSPHATASE INCREASED [None]
  - BLOOD BILIRUBIN INCREASED [None]
  - BLOOD GLUCOSE INCREASED [None]
  - CARBON DIOXIDE DECREASED [None]
  - CHILLS [None]
  - CHROMATURIA [None]
  - CYSTOCELE [None]
  - GLOBULINS INCREASED [None]
  - HAEMATOCRIT DECREASED [None]
  - HAEMOGLOBIN DECREASED [None]
  - HEPATITIS [None]
  - HEPATITIS CHOLESTATIC [None]
  - HEPATOCELLULAR DAMAGE [None]
  - HYPERHIDROSIS [None]
  - JAUNDICE [None]
  - NAUSEA [None]
  - NEUTROPHIL COUNT INCREASED [None]
  - PROTEIN TOTAL INCREASED [None]
  - PYREXIA [None]
  - RED BLOOD CELL COUNT DECREASED [None]
  - SPLEEN DISORDER [None]
  - VOMITING [None]
  - WHITE BLOOD CELL COUNT INCREASED [None]
